FAERS Safety Report 18864959 (Version 1)
Quarter: 2021Q1

REPORT INFORMATION
  Report Type: Spontaneous
  Country: US (occurrence: US)
  Receive Date: 20210208
  Receipt Date: 20210208
  Transmission Date: 20210420
  Serious: Yes (Other)
  Sender: FDA-Public Use
  Company Number: None

PATIENT
  Age: 70 Year
  Sex: Male
  Weight: 47.25 kg

DRUGS (15)
  1. CENTRUM [Concomitant]
     Active Substance: VITAMINS
  2. NIFEDIPINE. [Concomitant]
     Active Substance: NIFEDIPINE
  3. PREDNISONE. [Concomitant]
     Active Substance: PREDNISONE
  4. LABETOLOL [Concomitant]
     Active Substance: LABETALOL HYDROCHLORIDE
  5. COLACE [Concomitant]
     Active Substance: DOCUSATE SODIUM
  6. PROLIA [Suspect]
     Active Substance: DENOSUMAB
     Indication: OSTEOPOROSIS
  7. SEVELEMER [Concomitant]
  8. ALLOPURINOL. [Concomitant]
     Active Substance: ALLOPURINOL
  9. VITAMIN D3 [Concomitant]
     Active Substance: CHOLECALCIFEROL
  10. CELLCEPT [Concomitant]
     Active Substance: MYCOPHENOLATE MOFETIL\MYCOPHENOLATE MOFETIL HYDROCHLORIDE
  11. SANDIMMUNE [Concomitant]
     Active Substance: CYCLOSPORINE
  12. HYDRALYZINE [Concomitant]
  13. PRAVASTATIN. [Concomitant]
     Active Substance: PRAVASTATIN
  14. ISOSORBIDE CARBONATE [Concomitant]
  15. TRESIBA [Concomitant]
     Active Substance: INSULIN DEGLUDEC

REACTIONS (9)
  - Arthralgia [None]
  - Muscular weakness [None]
  - Asthenia [None]
  - Groin pain [None]
  - Fatigue [None]
  - Peripheral swelling [None]
  - Pain [None]
  - Back pain [None]
  - Flushing [None]

NARRATIVE: CASE EVENT DATE: 20210207
